FAERS Safety Report 5164836-4 (Version None)
Quarter: 2006Q4

REPORT INFORMATION
  Report Type: 
  Country: None (occurrence: None)
  Receive Date: 20061124
  Receipt Date: 20061113
  Transmission Date: 20070319
  Serious: Yes (Disabling)
  Sender: FDA-Public Use
  Company Number: 149863ISR

PATIENT
  Age: 80 Year
  Sex: Female

DRUGS (2)
  1. FUROSEMIDE [Suspect]
  2. RISPERIDONE [Suspect]
     Indication: PSYCHOTIC DISORDER
     Dosage: 3 MG (3 MG, 1 IN 1 D) ORAL
     Route: 048

REACTIONS (4)
  - BEDRIDDEN [None]
  - DRUG INTERACTION [None]
  - GENERAL PHYSICAL HEALTH DETERIORATION [None]
  - MALAISE [None]
